FAERS Safety Report 6886158-3 (Version None)
Quarter: 2010Q3

REPORT INFORMATION
  Report Type: 
  Country: None (occurrence: None)
  Receive Date: 20100729
  Receipt Date: 20080131
  Transmission Date: 20110219
  Serious: No
  Sender: FDA-Public Use
  Company Number: US-PFIZER INC-2008012836

PATIENT
  Sex: Female

DRUGS (4)
  1. CELEBREX [Suspect]
     Indication: OSTEOARTHRITIS
     Dates: start: 20071226
  2. CALCIUM [Concomitant]
  3. MULTI-VITAMINS [Concomitant]
  4. MAGNESIUM [Concomitant]

REACTIONS (3)
  - GASTRIC DISORDER [None]
  - PRURITUS [None]
  - WEIGHT INCREASED [None]
